FAERS Safety Report 7058813-6 (Version None)
Quarter: 2010Q4

REPORT INFORMATION
  Report Type: 
  Country: None (occurrence: None)
  Receive Date: 20101022
  Receipt Date: 20101012
  Transmission Date: 20110411
  Serious: Yes (Hospitalization)
  Sender: FDA-Public Use
  Company Number: US-ABBOTT-10P-163-0678241-00

PATIENT
  Sex: Male
  Weight: 105.33 kg

DRUGS (4)
  1. DEPAKENE [Suspect]
     Indication: EPILEPSY
     Dosage: 4 TBSP IN AM AND 4 TBSP PM
     Dates: start: 20030101
  2. TEGRETOL [Concomitant]
     Indication: EPILEPSY
     Dosage: 500MG  X 5 CHEW TABS AM 500MG X 5 CHEW TABS PM
     Dates: start: 20030101
  3. LEVOXYL [Concomitant]
     Indication: HYPOTHYROIDISM
     Dates: start: 20070101
  4. CRESTOR [Concomitant]
     Indication: BLOOD CHOLESTEROL INCREASED
     Dates: start: 20101001

REACTIONS (2)
  - DRUG LEVEL INCREASED [None]
  - GRAND MAL CONVULSION [None]
